FAERS Safety Report 10431979 (Version 1)
Quarter: 2014Q3

REPORT INFORMATION
  Report Type: Spontaneous
  Country: US (occurrence: US)
  Receive Date: 20140905
  Receipt Date: 20140905
  Transmission Date: 20150326
  Serious: No
  Sender: FDA-Public Use
  Company Number: US-BIOGENIDEC-2014BI089101

PATIENT
  Age: 55 Year
  Sex: Female

DRUGS (15)
  1. AVONEX [Suspect]
     Active Substance: INTERFERON BETA-1A
     Indication: MULTIPLE SCLEROSIS
     Route: 030
     Dates: start: 20140819, end: 20140820
  2. WELCHOL [Concomitant]
     Active Substance: COLESEVELAM HYDROCHLORIDE
  3. ROPINIROLE HCI [Concomitant]
  4. LACTULOSE. [Concomitant]
     Active Substance: LACTULOSE
  5. MORPHINE SULFATE. [Concomitant]
     Active Substance: MORPHINE SULFATE
  6. TRAZODONE HCI [Concomitant]
  7. TREXIMET [Concomitant]
     Active Substance: NAPROXEN SODIUM\SUMATRIPTAN SUCCINATE
  8. REQUIP [Concomitant]
     Active Substance: ROPINIROLE HYDROCHLORIDE
  9. OMEPRAZOLE. [Concomitant]
     Active Substance: OMEPRAZOLE
  10. ADVIL [Concomitant]
     Active Substance: IBUPROFEN
  11. DOXYCYCLINE HYCLATE. [Concomitant]
     Active Substance: DOXYCYCLINE HYCLATE
  12. AMITIZA [Concomitant]
     Active Substance: LUBIPROSTONE
  13. MORPHINE SULFATE CR [Concomitant]
  14. ONDANSETRON HCI [Concomitant]
  15. LYRICA [Concomitant]
     Active Substance: PREGABALIN

REACTIONS (2)
  - Anxiety [Unknown]
  - Muscle twitching [Unknown]

NARRATIVE: CASE EVENT DATE: 20140820
